FAERS Safety Report 14541710 (Version 2)
Quarter: 2018Q1

REPORT INFORMATION
  Report Type: Report from Study
  Country: ES (occurrence: ES)
  Receive Date: 20180216
  Receipt Date: 20180302
  Transmission Date: 20180509
  Serious: Yes (Hospitalization, Other)
  Sender: FDA-Public Use
  Company Number: ES-TEVA-2018-ES-858024

PATIENT
  Age: 70 Year
  Sex: Female
  Weight: 55 kg

DRUGS (6)
  1. FENTANYL. [Suspect]
     Active Substance: FENTANYL
     Indication: SPINAL PAIN
     Dosage: 1/72 H
     Route: 062
  2. SOLOSTAR [Suspect]
     Active Substance: DEVICE
     Indication: DIABETES MELLITUS
     Dates: start: 20150609
  3. CALCIUM [Concomitant]
     Active Substance: CALCIUM
     Indication: OSTEOPOROSIS
  4. LANTUS SOLOSTAR [Suspect]
     Active Substance: INSULIN GLARGINE
     Indication: DIABETES MELLITUS
     Route: 058
     Dates: start: 20150609
  5. EUCREAS [Concomitant]
     Active Substance: METFORMIN HYDROCHLORIDE\VILDAGLIPTIN
     Indication: DIABETES MELLITUS
     Dosage: 0-0-1
     Route: 048
  6. DOBUPAL [Concomitant]
     Active Substance: VENLAFAXINE HYDROCHLORIDE
     Indication: DEPRESSION
     Route: 048

REACTIONS (15)
  - Spinal pain [Not Recovered/Not Resolved]
  - Weight decreased [Unknown]
  - Hyperglycaemia [Recovered/Resolved]
  - Headache [Not Recovered/Not Resolved]
  - Spinal fracture [Not Recovered/Not Resolved]
  - Dizziness [Not Recovered/Not Resolved]
  - Anaemia [Recovered/Resolved]
  - Mobility decreased [Not Recovered/Not Resolved]
  - Polyp [Unknown]
  - Weight decreased [Unknown]
  - Depressed mood [Not Recovered/Not Resolved]
  - Mydriasis [Not Recovered/Not Resolved]
  - Unevaluable event [Unknown]
  - Decreased appetite [Not Recovered/Not Resolved]
  - Colon neoplasm [Recovered/Resolved]

NARRATIVE: CASE EVENT DATE: 20150726
